FAERS Safety Report 10905661 (Version 1)
Quarter: 2015Q1

REPORT INFORMATION
  Report Type: Spontaneous
  Country: US (occurrence: None)
  Receive Date: 20150309
  Receipt Date: 20150309
  Transmission Date: 20150721
  Serious: Yes (Disabling)
  Sender: FDA-Public Use
  Company Number: None

PATIENT
  Age: 47 Year
  Sex: Female
  Weight: 77.11 kg

DRUGS (18)
  1. SULFAMETH [Concomitant]
  2. PANTOPRAZOLE [Concomitant]
     Active Substance: PANTOPRAZOLE SODIUM
  3. ZYRTEC [Concomitant]
     Active Substance: CETIRIZINE HYDROCHLORIDE
  4. AZITHROMYCIN [Concomitant]
     Active Substance: AZITHROMYCIN ANHYDROUS
  5. BIOTIN [Concomitant]
     Active Substance: BIOTIN
  6. LEVAQUIN [Suspect]
     Active Substance: LEVOFLOXACIN
     Indication: PNEUMONIA
     Dosage: 1 AND 1/2 PILLS ONCE DAILY
     Route: 048
     Dates: start: 20130211, end: 20130217
  7. RESTASIS [Concomitant]
     Active Substance: CYCLOSPORINE
  8. FLONASE [Concomitant]
     Active Substance: FLUTICASONE PROPIONATE
  9. CALCIUM WITH VITAMIN D [Concomitant]
     Active Substance: CALCIUM\VITAMIN D
  10. SINGULAIR [Concomitant]
     Active Substance: MONTELUKAST SODIUM
  11. SIROLIMUS. [Concomitant]
     Active Substance: SIROLIMUS
  12. ACYCLOVIR. [Concomitant]
     Active Substance: ACYCLOVIR
  13. ADVAIR HFA [Concomitant]
     Active Substance: FLUTICASONE PROPIONATE\SALMETEROL XINAFOATE
  14. PREDNISONE. [Concomitant]
     Active Substance: PREDNISONE
  15. LEVOTHROXINE SODIUM [Concomitant]
     Active Substance: LEVOTHYROXINE SODIUM
  16. NORVASC [Concomitant]
     Active Substance: AMLODIPINE BESYLATE
  17. LIPITOR [Concomitant]
     Active Substance: ATORVASTATIN CALCIUM
  18. POTASSIUM CL ER [Concomitant]

REACTIONS (2)
  - Abasia [None]
  - Tendonitis [None]

NARRATIVE: CASE EVENT DATE: 20130216
